FAERS Safety Report 6825084-2 (Version None)
Quarter: 2010Q3

REPORT INFORMATION
  Report Type: 
  Country: None (occurrence: None)
  Receive Date: 20100708
  Receipt Date: 20070110
  Transmission Date: 20110219
  Serious: Yes (Other)
  Sender: FDA-Public Use
  Company Number: US-PFIZER INC-2007003145

PATIENT
  Sex: Male
  Weight: 82.1 kg

DRUGS (3)
  1. CHANTIX [Suspect]
     Indication: EX-TOBACCO USER
     Dates: start: 20061201
  2. NICOTINE [Suspect]
  3. LEVOTHYROXINE SODIUM [Concomitant]

REACTIONS (7)
  - AGITATION [None]
  - CONVULSION [None]
  - HYPOKINESIA [None]
  - LOSS OF CONSCIOUSNESS [None]
  - MALAISE [None]
  - TREMOR [None]
  - VOMITING [None]
